FAERS Safety Report 20113100 (Version 1)
Quarter: 2021Q4

REPORT INFORMATION
  Report Type: Spontaneous
  Country: US (occurrence: None)
  Receive Date: 20211124
  Receipt Date: 20211124
  Transmission Date: 20220304
  Serious: No
  Sender: FDA-Public Use
  Company Number: None

PATIENT

DRUGS (2)
  1. PAMELOR [Suspect]
     Active Substance: NORTRIPTYLINE HYDROCHLORIDE
  2. MAXALT [Suspect]
     Active Substance: RIZATRIPTAN BENZOATE

REACTIONS (2)
  - Dizziness [None]
  - Headache [None]
